FAERS Safety Report 7028874-9 (Version None)
Quarter: 2010Q4

REPORT INFORMATION
  Report Type: 
  Country: None (occurrence: None)
  Receive Date: 20101005
  Receipt Date: 20101004
  Transmission Date: 20110411
  Serious: Yes (Hospitalization, Other)
  Sender: FDA-Public Use
  Company Number: US-BRISTOL-MYERS SQUIBB COMPANY-15315898

PATIENT
  Age: 64 Year
  Sex: Male
  Weight: 63 kg

DRUGS (11)
  1. PACLITAXEL [Suspect]
     Indication: NON-SMALL CELL LUNG CANCER
     Dosage: 1 IN  21D
     Route: 042
     Dates: start: 20100810
  2. CARBOPLATIN [Suspect]
     Indication: NON-SMALL CELL LUNG CANCER
     Dosage: 1 IN  21D
     Route: 042
     Dates: start: 20100810
  3. FINASTERIDE [Concomitant]
     Dates: start: 20080101
  4. FERROUS SULFATE [Concomitant]
     Dates: start: 20100609
  5. RANITIDINE [Concomitant]
     Dates: start: 20100401
  6. MULTI-VITAMINS [Concomitant]
     Dates: start: 20100201
  7. METFORMIN [Concomitant]
     Indication: DIABETES MELLITUS
     Dates: start: 20070101
  8. GLIPIZIDE [Concomitant]
     Indication: DIABETES MELLITUS
     Dates: start: 20030101
  9. ENALAPRIL MALEATE [Concomitant]
     Indication: HYPERTENSION
  10. MORPHINE SULFATE [Concomitant]
     Indication: PAIN
     Dates: start: 20100401
  11. FLOMAX [Concomitant]
     Indication: URINARY RETENTION
     Dosage: 1DF-0.4(UNITS NOT SPECIFIED)
     Dates: start: 20080101

REACTIONS (2)
  - BONE PAIN [None]
  - NEUTROPENIA [None]
